FAERS Safety Report 18784956 (Version 1)
Quarter: 2021Q1

REPORT INFORMATION
  Report Type: Spontaneous
  Country: TH (occurrence: TH)
  Receive Date: 20210125
  Receipt Date: 20210125
  Transmission Date: 20210419
  Serious: Yes (Other)
  Sender: FDA-Public Use
  Company Number: TH-GLAXOSMITHKLINE-TH2021GSK012631

PATIENT
  Age: 40 Year
  Sex: Male

DRUGS (26)
  1. OSELTAMIVIR [Concomitant]
     Active Substance: OSELTAMIVIR
     Indication: ENTEROVIRUS INFECTION
     Dosage: UNK
  2. PROPOFOL. [Concomitant]
     Active Substance: PROPOFOL
     Dosage: 100 MG PER HOUR (AT 12H)
  3. CISATRACURIUM. [Concomitant]
     Active Substance: CISATRACURIUM
     Dosage: 2.2 UG/KG/MIN (AT 12H)
  4. PROPOFOL. [Concomitant]
     Active Substance: PROPOFOL
     Dosage: 100 MG PER HOUR (AT 24H)
  5. FENTANYL. [Concomitant]
     Active Substance: FENTANYL
     Indication: ASTHMA
     Dosage: 4 UG PER HOUR (AT 0H)
  6. MIDAZOLAM. [Concomitant]
     Active Substance: MIDAZOLAM
     Indication: SEDATIVE THERAPY
     Dosage: 4 MG PER HOUR (AT 0H)
  7. CEFTRIAZONE [Concomitant]
     Indication: RHINOVIRUS INFECTION
  8. FENTANYL. [Concomitant]
     Active Substance: FENTANYL
     Dosage: 5 UG PER HOUR (AT 6H)
  9. FLUTICASONE PROPIONATE+SALMETEROL XINAFOATE [Concomitant]
     Active Substance: FLUTICASONE PROPIONATE\SALMETEROL XINAFOATE
     Indication: STATUS ASTHMATICUS
     Dosage: UNK, (25 MCG/250 MCG) 4 INHALATIONS EVERY 12 H
  10. CEFTRIAZONE [Concomitant]
     Indication: ENTEROVIRUS INFECTION
     Dosage: UNK
  11. FENTANYL. [Concomitant]
     Active Substance: FENTANYL
     Dosage: 6 UG PER HOUR (AT 12H)
  12. FENTANYL. [Concomitant]
     Active Substance: FENTANYL
     Dosage: 4 UG PER HOUR (AT 32H)
  13. FENTANYL. [Concomitant]
     Active Substance: FENTANYL
     Dosage: 6 UG PER HOUR (AT 24H)
  14. MIDAZOLAM. [Concomitant]
     Active Substance: MIDAZOLAM
     Dosage: 4 MG PER HOUR (AT 32H)
  15. AZITHROMYCIN ANHYDROUS. [Concomitant]
     Active Substance: AZITHROMYCIN ANHYDROUS
     Indication: ENTEROVIRUS INFECTION
     Dosage: UNK
  16. OSELTAMIVIR [Concomitant]
     Active Substance: OSELTAMIVIR
     Indication: RHINOVIRUS INFECTION
  17. MIDAZOLAM. [Concomitant]
     Active Substance: MIDAZOLAM
     Dosage: 5 MG PER HOUR (AT 6H)
  18. MIDAZOLAM. [Concomitant]
     Active Substance: MIDAZOLAM
     Dosage: 6 MG PER HOUR (AT 24H)
  19. SALBUTAMOL [Suspect]
     Active Substance: ALBUTEROL
     Indication: STATUS ASTHMATICUS
     Dosage: 100 UG PER PUFF (4?8 PUFFS EVERY 15?30 MIN)
     Route: 055
  20. TIOTROPIUM BROMIDE INHALER [Concomitant]
     Indication: STATUS ASTHMATICUS
     Dosage: 2.5 UG (SOFT MIST INHALER) 4 INHALATION
     Route: 055
  21. MAGNESIUM SULPHATE INFUSION [Concomitant]
     Indication: ASTHMA
     Dosage: UNK
     Route: 042
  22. AZITHROMYCIN ANHYDROUS. [Concomitant]
     Active Substance: AZITHROMYCIN ANHYDROUS
     Indication: RHINOVIRUS INFECTION
  23. PROPOFOL. [Concomitant]
     Active Substance: PROPOFOL
     Indication: SEDATIVE THERAPY
     Dosage: 200 MG PER HOUR (AT 6H)
  24. PROPOFOL. [Concomitant]
     Active Substance: PROPOFOL
     Dosage: 60 MG PER HOUR (AT 32H)
  25. MIDAZOLAM. [Concomitant]
     Active Substance: MIDAZOLAM
     Dosage: 6 MG PER HOUR (AT 12H)
  26. CISATRACURIUM. [Concomitant]
     Active Substance: CISATRACURIUM
     Indication: PRODUCT USED FOR UNKNOWN INDICATION
     Dosage: 2.2 UG/KG/MIN (AT 6H)

REACTIONS (4)
  - Metabolic acidosis [Unknown]
  - Toxicity to various agents [Unknown]
  - Hypoxia [Recovered/Resolved]
  - Lactic acidosis [Recovered/Resolved]
